FAERS Safety Report 6755951-X (Version None)
Quarter: 2010Q2

REPORT INFORMATION
  Report Type: 
  Country: None (occurrence: None)
  Receive Date: 20100604
  Receipt Date: 20100521
  Transmission Date: 20101027
  Serious: Yes (Other)
  Sender: FDA-Public Use
  Company Number: PHHY2010DE34445

PATIENT
  Age: 33 Year
  Sex: Male
  Weight: 120 kg

DRUGS (6)
  1. CARBAMAZEPINE [Suspect]
     Indication: EPILEPSY
     Dosage: 0.5-0 DF/DAILY
     Route: 048
     Dates: end: 20100315
  2. TIMOX [Suspect]
     Indication: EPILEPSY
     Dosage: 600 MG, UNK
     Route: 048
     Dates: start: 20100310
  3. METFORMIN [Suspect]
     Indication: TYPE 2 DIABETES MELLITUS
     Dosage: 500 MG, UNK
     Route: 048
     Dates: start: 20100310
  4. LAMOTRIGINE [Suspect]
     Indication: EPILEPSY
     Dosage: 200 MG, UNK
     Route: 048
  5. BEZAFIBRATE [Suspect]
     Indication: DYSLIPIDAEMIA
     Dosage: 400 MG, DAILY
     Route: 048
     Dates: start: 20100312
  6. LANTUS [Suspect]
     Indication: TYPE 2 DIABETES MELLITUS
     Dosage: 26 IU, UNK
     Route: 058
     Dates: start: 20100315

REACTIONS (1)
  - DYSLIPIDAEMIA [None]
